FAERS Safety Report 6045814-X (Version None)
Quarter: 2009Q1

REPORT INFORMATION
  Report Type: 
  Country: None (occurrence: None)
  Receive Date: 20090121
  Receipt Date: 20090116
  Transmission Date: 20090719
  Serious: Yes (Death, Hospitalization)
  Sender: FDA-Public Use
  Company Number: UG-GILEAD-2009-0019890

PATIENT
  Age: 43 Year
  Sex: Female
  Weight: 39.5 kg

DRUGS (4)
  1. TRUVADA [Suspect]
     Indication: HIV INFECTION
     Route: 048
     Dates: start: 20080607, end: 20081209
  2. ALUVIA [Suspect]
     Indication: HIV INFECTION
     Route: 048
     Dates: start: 20080607, end: 20081210
  3. COTRIM [Concomitant]
  4. ACETAMINOPHEN [Concomitant]

REACTIONS (1)
  - DISSEMINATED TUBERCULOSIS [None]
